FAERS Safety Report 13358444 (Version 1)
Quarter: 2017Q1

REPORT INFORMATION
  Report Type: Report from Study
  Country: US (occurrence: US)
  Receive Date: 20170322
  Receipt Date: 20170322
  Transmission Date: 20170429
  Serious: Yes (Other)
  Sender: FDA-Public Use
  Company Number: PHEH2015US023638

PATIENT
  Sex: Male

DRUGS (2)
  1. GLEEVEC [Suspect]
     Active Substance: IMATINIB MESYLATE
     Indication: HEPATIC CANCER
     Dosage: 400 MG, UNK
     Route: 065
  2. MULTI VITAMIN [Concomitant]
     Active Substance: VITAMINS
     Indication: PRODUCT USED FOR UNKNOWN INDICATION
     Route: 065

REACTIONS (2)
  - Dementia [Unknown]
  - Product use issue [Unknown]
